FAERS Safety Report 25877309 (Version 1)
Quarter: 2025Q4

REPORT INFORMATION
  Report Type: Spontaneous
  Country: IL (occurrence: IL)
  Receive Date: 20251003
  Receipt Date: 20251003
  Transmission Date: 20260118
  Serious: Yes (Life-Threatening, Hospitalization)
  Sender: MACLEODS
  Company Number: IL-MLMSERVICE-20250920-PI647992-00237-2

PATIENT

DRUGS (17)
  1. HYDRALAZINE [Suspect]
     Active Substance: HYDRALAZINE HYDROCHLORIDE
     Indication: Hypertension
     Route: 042
  2. HYDRALAZINE [Suspect]
     Active Substance: HYDRALAZINE HYDROCHLORIDE
     Dosage: GIVEN AT DOSES HIGHER THAN STANDARD RECOMMENDATIONS
     Route: 048
  3. LABETALOL [Suspect]
     Active Substance: LABETALOL
     Indication: Hypertension
     Route: 042
  4. LABETALOL [Suspect]
     Active Substance: LABETALOL
     Dosage: GIVEN AT DOSES HIGHER THAN STANDARD RECOMMENDATIONS
     Route: 048
  5. AMLODIPINE [Suspect]
     Active Substance: AMLODIPINE BESYLATE
     Indication: Hypertension
     Dosage: GIVEN AT DOSES HIGHER THAN STANDARD RECOMMENDATIONS
     Route: 048
  6. NIFEDIPINE [Suspect]
     Active Substance: NIFEDIPINE
     Indication: Hypertension
  7. NIFEDIPINE [Suspect]
     Active Substance: NIFEDIPINE
     Dosage: GIVEN AT DOSES HIGHER THAN STANDARD RECOMMENDATIONS
     Route: 048
  8. ENALAPRIL [Suspect]
     Active Substance: ENALAPRIL
     Indication: Hypertension
     Dosage: GIVEN AT DOSES HIGHER THAN STANDARD RECOMMENDATIONS
     Route: 048
  9. DOXAZOSIN [Suspect]
     Active Substance: DOXAZOSIN MESYLATE
     Indication: Hypertension
     Route: 065
  10. CLONIDINE [Suspect]
     Active Substance: CLONIDINE
     Indication: Hypertension
     Dosage: GIVEN AT DOSES HIGHER THAN STANDARD RECOMMENDATIONS
     Route: 048
  11. MINOXIDIL [Suspect]
     Active Substance: MINOXIDIL
     Indication: Hypertension
     Route: 065
  12. NITROPRUSSIDE [Suspect]
     Active Substance: NITROPRUSSIDE
     Indication: Hypertension
     Route: 042
  13. PHENTOLAMINE [Suspect]
     Active Substance: PHENTOLAMINE
     Indication: Hypertension
     Route: 042
  14. NICARDIPINE [Suspect]
     Active Substance: NICARDIPINE
     Indication: Hypertension
     Route: 042
  15. METHYLPREDNISOLONE [Concomitant]
     Active Substance: METHYLPREDNISOLONE
     Dosage: PULSES
     Route: 042
  16. PREDNISOLONE [Concomitant]
     Active Substance: PREDNISOLONE
     Route: 048
  17. INFLIXIMAB [Concomitant]
     Active Substance: INFLIXIMAB
     Route: 065

REACTIONS (1)
  - Renal failure [Recovered/Resolved]
